FAERS Safety Report 11536918 (Version 1)
Quarter: 2015Q3

REPORT INFORMATION
  Report Type: Spontaneous
  Country: GR (occurrence: None)
  Receive Date: 20150921
  Receipt Date: 20150921
  Transmission Date: 20151125
  Serious: Yes (Disabling)
  Sender: FDA-Public Use
  Company Number: None

PATIENT
  Age: 32 Year
  Sex: Male
  Weight: 75 kg

DRUGS (3)
  1. VITAMINS [Concomitant]
     Active Substance: VITAMINS
  2. SEROPRAM [Suspect]
     Active Substance: CITALOPRAM HYDROBROMIDE
     Indication: SOCIAL PHOBIA
     Dosage: 1 PILL
     Route: 048
  3. SOLBEN [Suspect]
     Active Substance: PAROXETINE\PAROXETINE HYDROCHLORIDE
     Dosage: 2, 5 YEARS?1 PILL
     Route: 048

REACTIONS (10)
  - Male orgasmic disorder [None]
  - Libido decreased [None]
  - Erectile dysfunction [None]
  - Premature ejaculation [None]
  - Sexual dysfunction [None]
  - Genital hypoaesthesia [None]
  - Penile pain [None]
  - Semen discolouration [None]
  - Penile size reduced [None]
  - Semen volume decreased [None]

NARRATIVE: CASE EVENT DATE: 20100512
